FAERS Safety Report 18697094 (Version 1)
Quarter: 2021Q1

REPORT INFORMATION
  Report Type: Spontaneous
  Country: US (occurrence: US)
  Receive Date: 20210104
  Receipt Date: 20210104
  Transmission Date: 20210419
  Serious: No
  Sender: FDA-Public Use
  Company Number: US-JNJFOC-20201039890

PATIENT
  Age: 74 Year
  Sex: Male

DRUGS (7)
  1. AMBRISENTAN [Suspect]
     Active Substance: AMBRISENTAN
     Indication: PULMONARY ARTERIAL HYPERTENSION
     Route: 048
     Dates: start: 20200522
  2. UPTRAVI [Suspect]
     Active Substance: SELEXIPAG
     Route: 065
  3. LISINOPRIL. [Concomitant]
     Active Substance: LISINOPRIL
  4. UPTRAVI [Suspect]
     Active Substance: SELEXIPAG
     Route: 065
  5. UPTRAVI [Suspect]
     Active Substance: SELEXIPAG
     Indication: PRODUCT USED FOR UNKNOWN INDICATION
     Route: 065
  6. SPIRONOLACTONE. [Concomitant]
     Active Substance: SPIRONOLACTONE
  7. TADALAFIL. [Concomitant]
     Active Substance: TADALAFIL

REACTIONS (27)
  - Pain in extremity [Not Recovered/Not Resolved]
  - Nausea [Not Recovered/Not Resolved]
  - Dyspnoea exertional [Not Recovered/Not Resolved]
  - Dizziness [Unknown]
  - Dry mouth [Not Recovered/Not Resolved]
  - Arthralgia [Recovered/Resolved]
  - Abdominal discomfort [Unknown]
  - Myalgia [Not Recovered/Not Resolved]
  - Sinus congestion [Not Recovered/Not Resolved]
  - Breast tenderness [Unknown]
  - Hypotension [Unknown]
  - Sinus headache [Not Recovered/Not Resolved]
  - Bone pain [Recovered/Resolved]
  - Chest pain [Unknown]
  - Nipple pain [Unknown]
  - Pain in jaw [Not Recovered/Not Resolved]
  - Nasopharyngitis [Unknown]
  - Chest discomfort [Not Recovered/Not Resolved]
  - Vomiting [Unknown]
  - Head discomfort [Not Recovered/Not Resolved]
  - Weight decreased [Unknown]
  - Constipation [Unknown]
  - Pain [Recovering/Resolving]
  - Headache [Not Recovered/Not Resolved]
  - Abdominal distension [Unknown]
  - Hyperaesthesia [Unknown]
  - Breast pain [Unknown]
